FAERS Safety Report 17111408 (Version 2)
Quarter: 2020Q1

REPORT INFORMATION
  Report Type: Spontaneous
  Country: ES (occurrence: ES)
  Receive Date: 20191204
  Receipt Date: 20200205
  Transmission Date: 20200409
  Serious: Yes (Hospitalization)
  Sender: FDA-Public Use
  Company Number: ES-JNJFOC-20191136440

PATIENT
  Age: 59 Year
  Sex: Female

DRUGS (2)
  1. YONDELIS [Suspect]
     Active Substance: TRABECTEDIN
     Indication: METASTATIC UTERINE CANCER
     Dosage: CYCLES 1-2
     Route: 042
  2. YONDELIS [Suspect]
     Active Substance: TRABECTEDIN
     Dosage: CYCLE 3
     Route: 042

REACTIONS (2)
  - Pancytopenia [Unknown]
  - Asthenia [Unknown]
